FAERS Safety Report 9700854 (Version 2)
Quarter: 2014Q1

REPORT INFORMATION
  Report Type: Spontaneous
  Country: JP (occurrence: JP)
  Receive Date: 20131121
  Receipt Date: 20140206
  Transmission Date: 20141002
  Serious: Yes (Other)
  Sender: FDA-Public Use
  Company Number: JP-ABBVIE-13P-087-1171066-00

PATIENT
  Age: 75 Year
  Sex: Male

DRUGS (2)
  1. LEUPLIN [Suspect]
     Indication: PROSTATE CANCER
     Route: 058
     Dates: start: 20131015, end: 20131015
  2. BICALUTAMIDE [Concomitant]
     Indication: PRODUCT USED FOR UNKNOWN INDICATION
     Dates: start: 20121128

REACTIONS (2)
  - Pruritus generalised [Recovered/Resolved]
  - Rash generalised [Recovered/Resolved]
